FAERS Safety Report 7411087-6 (Version None)
Quarter: 2011Q2

REPORT INFORMATION
  Report Type: 
  Country: None (occurrence: None)
  Receive Date: 20110405
  Receipt Date: 20110317
  Transmission Date: 20111010
  Serious: Yes (Death)
  Sender: FDA-Public Use
  Company Number: 2011P1005318

PATIENT
  Age: 73 Year
  Sex: Female

DRUGS (1)
  1. GLYBURIDE [Suspect]
     Dosage: ; PO
     Route: 048

REACTIONS (1)
  - MEDICATION ERROR [None]
